FAERS Safety Report 8508381-4 (Version None)
Quarter: 2012Q3

REPORT INFORMATION
  Report Type: 
  Country: None (occurrence: None)
  Receive Date: 20120713
  Receipt Date: 20120710
  Transmission Date: 20120928
  Serious: Yes (Other)
  Sender: FDA-Public Use
  Company Number: PHEH2012US011636

PATIENT
  Sex: Female
  Weight: 131.52 kg

DRUGS (7)
  1. GABAPENTIN [Concomitant]
     Dosage: UNK UKN, UNK
  2. GILENYA [Suspect]
     Indication: MULTIPLE SCLEROSIS
     Dosage: 0.5 MG, QD
     Route: 048
     Dates: start: 20110808, end: 20120418
  3. MULTI-VITAMINS [Concomitant]
     Dosage: UNK UKN, UNK
  4. ULTRAM [Concomitant]
     Dosage: UNK UKN, UNK
  5. BACLOFEN [Concomitant]
     Dosage: 10 MG, TID
     Route: 048
  6. CELEXA [Concomitant]
     Dosage: UNK UKN, UNK
  7. MIRENA [Concomitant]
     Dosage: UNK UKN, UNK
     Route: 015

REACTIONS (3)
  - JC VIRUS TEST POSITIVE [None]
  - URINARY TRACT INFECTION [None]
  - VISION BLURRED [None]
